FAERS Safety Report 5128807-6 (Version None)
Quarter: 2006Q4

REPORT INFORMATION
  Report Type: 
  Country: None (occurrence: None)
  Receive Date: 20061011
  Receipt Date: 20061002
  Transmission Date: 20070319
  Serious: Yes (Hospitalization)
  Sender: FDA-Public Use
  Company Number: HQWYE270120JUL04

PATIENT
  Age: 53 Year
  Sex: Female

DRUGS (2)
  1. PREMPRO [Suspect]
     Indication: HORMONE REPLACEMENT THERAPY
  2. PREMARIN [Suspect]

REACTIONS (13)
  - ACIDOSIS [None]
  - BRADYCARDIA [None]
  - CARDIAC ARREST [None]
  - CARDIAC DISORDER [None]
  - DEEP VEIN THROMBOSIS [None]
  - DIASTOLIC DYSFUNCTION [None]
  - HAEMATOMA [None]
  - HAEMORRHAGE [None]
  - HYPERTROPHIC CARDIOMYOPATHY [None]
  - JUGULAR VEIN THROMBOSIS [None]
  - MYOCARDIAL INFARCTION [None]
  - RENAL TRANSPLANT [None]
  - SHOCK [None]
